FAERS Safety Report 7878397-X (Version None)
Quarter: 2011Q4

REPORT INFORMATION
  Report Type: 
  Country: None (occurrence: None)
  Receive Date: 20111031
  Receipt Date: 20111020
  Transmission Date: 20120403
  Serious: Yes (Hospitalization)
  Sender: FDA-Public Use
  Company Number: 2011SP049656

PATIENT
  Sex: Female

DRUGS (1)
  1. NUVARING [Suspect]
     Dosage: ;VAG
     Dates: start: 20080101

REACTIONS (2)
  - OVARIAN CYST [None]
  - ADNEXA UTERI PAIN [None]
